FAERS Safety Report 19095887 (Version 3)
Quarter: 2021Q2

REPORT INFORMATION
  Report Type: Spontaneous
  Country: US (occurrence: US)
  Receive Date: 20210406
  Receipt Date: 20210617
  Transmission Date: 20210717
  Serious: Yes (Other)
  Sender: FDA-Public Use
  Company Number: US-CIPLA LTD.-2021US02350

PATIENT

DRUGS (2)
  1. SALBUTAMOL [Suspect]
     Active Substance: ALBUTEROL
     Indication: ASTHMA
     Dosage: UNK
     Route: 065
     Dates: start: 20210310, end: 2021
  2. ALENDRONATE [Concomitant]
     Active Substance: ALENDRONATE SODIUM
     Indication: BONE DISORDER
     Dosage: 70 MILLIGRAM, ONCE A WEEK, (STARTED 3 YEARS AGO) AURBINDO PHARMACEUTICALS
     Route: 065

REACTIONS (6)
  - Dyspnoea [Recovering/Resolving]
  - Device delivery system issue [Unknown]
  - Cough [Recovering/Resolving]
  - Asthma [Recovering/Resolving]
  - Wheezing [Recovering/Resolving]
  - Product cleaning inadequate [Unknown]

NARRATIVE: CASE EVENT DATE: 2021
